FAERS Safety Report 5357232-8 (Version None)
Quarter: 2007Q2

REPORT INFORMATION
  Report Type: 
  Country: None (occurrence: None)
  Receive Date: 20070614
  Receipt Date: 20070606
  Transmission Date: 20071010
  Serious: Yes (Other)
  Sender: FDA-Public Use
  Company Number: US-JNJFOC-20070601890

PATIENT
  Age: 69 Year
  Sex: Female
  Weight: 81.65 kg

DRUGS (2)
  1. LEVAQUIN [Suspect]
     Indication: URINARY TRACT INFECTION
     Route: 048
  2. LEXAPRO [Concomitant]
     Route: 048

REACTIONS (4)
  - ANXIETY [None]
  - PARAESTHESIA [None]
  - URTICARIA [None]
  - VISUAL DISTURBANCE [None]
